FAERS Safety Report 4774007-9 (Version None)
Quarter: 2005Q3

REPORT INFORMATION
  Report Type: 
  Country: None (occurrence: None)
  Receive Date: 20050919
  Receipt Date: 20050907
  Transmission Date: 20060218
  Serious: Yes (Life-Threatening, Hospitalization)
  Sender: FDA-Public Use
  Company Number: HQWYE332209SEP05

PATIENT
  Age: 70 Year
  Sex: Male

DRUGS (5)
  1. MYLOTARG [Suspect]
     Indication: MYELODYSPLASTIC SYNDROME
     Dosage: 7 MG 1X PER 1 DAY, INTRAVENOUS
     Route: 042
     Dates: start: 20050906, end: 20050906
  2. ARSENIC TRIOXIDE (ARSENIC TRIOXIDE) [Concomitant]
  3. PRINIVIL [Concomitant]
  4. MULTIVITAMINS, PLAIN (MULTIVITAMINS, PLAIN) [Concomitant]
  5. TRICOR [Concomitant]

REACTIONS (16)
  - ALANINE AMINOTRANSFERASE INCREASED [None]
  - ASPARTATE AMINOTRANSFERASE INCREASED [None]
  - BILIRUBIN CONJUGATED INCREASED [None]
  - BLOOD ALKALINE PHOSPHATASE INCREASED [None]
  - BLOOD CREATINE INCREASED [None]
  - CHEST X-RAY ABNORMAL [None]
  - DYSPNOEA [None]
  - HAEMOGLOBIN DECREASED [None]
  - HAEMORRHAGE [None]
  - HYPOTENSION [None]
  - INFUSION RELATED REACTION [None]
  - LUNG INFILTRATION [None]
  - NAUSEA [None]
  - OXYGEN SATURATION DECREASED [None]
  - PALLOR [None]
  - WHITE BLOOD CELL COUNT DECREASED [None]
